FAERS Safety Report 8426305-5 (Version None)
Quarter: 2012Q2

REPORT INFORMATION
  Report Type: 
  Country: None (occurrence: None)
  Receive Date: 20120323
  Receipt Date: 20110425
  Transmission Date: 20120825
  Serious: Yes (Other)
  Sender: FDA-Public Use
  Company Number: 163-21880-11043287

PATIENT
  Age: 64 Year
  Sex: Male
  Weight: 108.8633 kg

DRUGS (21)
  1. AREDIA [Concomitant]
  2. NEURONTIN [Concomitant]
  3. MS CONTIN [Concomitant]
  4. BENADRYL [Concomitant]
  5. MS CONTIN [Concomitant]
  6. FOLIC ACID [Concomitant]
  7. DEXAMETHASONE [Concomitant]
  8. PROAIR (FLUTICASONE PROPIONATE) [Concomitant]
  9. OSCAL (CALCIUM CARBONATE) [Concomitant]
  10. MULTIVITAMIN [Concomitant]
  11. RYTHMOL [Concomitant]
  12. SYNTHROID [Concomitant]
  13. METOPROLOL TARTRATE [Concomitant]
  14. REVLIMID [Suspect]
     Indication: MULTIPLE MYELOMA
     Dosage: 25 MG, DAILY FOR 21 DAYS 7 DAYS OFF, PO
     Route: 048
     Dates: start: 20110201
  15. MIRALAX [Concomitant]
  16. PREVACID [Concomitant]
  17. FLONASE [Concomitant]
  18. MAGNESIUM (MAGNESIUM) [Concomitant]
  19. ATIVAN [Concomitant]
  20. ARIXTRA (FONAPARINUX SODIUM) [Concomitant]
  21. VALTREX [Concomitant]

REACTIONS (4)
  - ANAEMIA [None]
  - THROMBOCYTOPENIA [None]
  - NEUTROPENIA [None]
  - GASTROENTERITIS VIRAL [None]
